FAERS Safety Report 20221812 (Version 1)
Quarter: 2021Q4

REPORT INFORMATION
  Report Type: Spontaneous
  Country: US (occurrence: None)
  Receive Date: 20211223
  Receipt Date: 20211223
  Transmission Date: 20220303
  Serious: Yes (Hospitalization, Other)
  Sender: FDA-Public Use
  Company Number: 2021A882547

PATIENT
  Age: 79 Year
  Sex: Female
  Weight: 46.3 kg

DRUGS (2)
  1. BRILINTA [Suspect]
     Active Substance: TICAGRELOR
     Indication: Myocardial infarction
     Route: 048
     Dates: start: 201907, end: 202112
  2. ASPIRIN [Concomitant]
     Active Substance: ASPIRIN
     Route: 048

REACTIONS (7)
  - Cerebrovascular accident [Unknown]
  - Fall [Unknown]
  - Clostridium difficile infection [Recovered/Resolved]
  - Dementia [Unknown]
  - Dementia Alzheimer^s type [Unknown]
  - Parkinson^s disease [Unknown]
  - Contusion [Unknown]

NARRATIVE: CASE EVENT DATE: 20210101
